FAERS Safety Report 5395655-1 (Version None)
Quarter: 2007Q3

REPORT INFORMATION
  Report Type: 
  Country: None (occurrence: None)
  Receive Date: 20070724
  Receipt Date: 20070718
  Transmission Date: 20080115
  Serious: Yes (Life-Threatening, Hospitalization)
  Sender: FDA-Public Use
  Company Number: US-ROXANE LABORATORIES, INC-2007-DE-04207GD

PATIENT
  Age: 29 Month
  Sex: Male
  Weight: 13.7 kg

DRUGS (1)
  1. ACETAMINOPHEN W/ CODEINE [Suspect]
     Indication: PROCEDURAL PAIN
     Dosage: 2 DOSES OF 1.75 MG/KG (OF CODEINE) AFTER TONSILLECTOMY, 4 DOSES (12 - 24 MG/DOSE) ON POD 1, 1.75 MG/
     Route: 048

REACTIONS (4)
  - APNOEA [None]
  - CEREBRAL INFARCTION [None]
  - NERVOUS SYSTEM DISORDER [None]
  - UNRESPONSIVE TO STIMULI [None]
